FAERS Safety Report 6318373-1 (Version None)
Quarter: 2009Q3

REPORT INFORMATION
  Report Type: 
  Country: None (occurrence: None)
  Receive Date: 20090821
  Receipt Date: 20090811
  Transmission Date: 20100115
  Serious: Yes (Other)
  Sender: FDA-Public Use
  Company Number: US-ABBOTT-09P-163-0590630-00

PATIENT
  Sex: Female
  Weight: 106.69 kg

DRUGS (11)
  1. NIASPAN [Suspect]
     Indication: BLOOD TRIGLYCERIDES INCREASED
     Dates: start: 20090627
  2. NIASPAN [Suspect]
     Indication: BLOOD CHOLESTEROL INCREASED
  3. NIASPAN [Suspect]
     Indication: HIGH DENSITY LIPOPROTEIN DECREASED
  4. ASPIRIN [Concomitant]
     Indication: DRUG USE FOR UNKNOWN INDICATION
  5. LOVAZA [Concomitant]
     Indication: DRUG USE FOR UNKNOWN INDICATION
  6. RED YEAST RICE [Concomitant]
     Indication: DRUG USE FOR UNKNOWN INDICATION
  7. CHROMIUM [Concomitant]
     Indication: DRUG USE FOR UNKNOWN INDICATION
  8. CLONAZEPAM [Concomitant]
     Indication: DRUG USE FOR UNKNOWN INDICATION
  9. FAMOTIDINE [Concomitant]
     Indication: DRUG USE FOR UNKNOWN INDICATION
  10. LEVOTHYROXINE [Concomitant]
     Indication: DRUG USE FOR UNKNOWN INDICATION
  11. VIT D [Concomitant]
     Indication: DRUG USE FOR UNKNOWN INDICATION

REACTIONS (5)
  - BLOOD CHOLESTEROL INCREASED [None]
  - CONVULSION [None]
  - FATIGUE [None]
  - FLUSHING [None]
  - NEPHROLITHIASIS [None]
